FAERS Safety Report 7729722-1 (Version None)
Quarter: 2011Q3

REPORT INFORMATION
  Report Type: 
  Country: None (occurrence: None)
  Receive Date: 20110906
  Receipt Date: 20110822
  Transmission Date: 20111222
  Serious: Yes (Hospitalization)
  Sender: FDA-Public Use
  Company Number: US-ROCHE-476216

PATIENT
  Sex: Female
  Weight: 139.1 kg

DRUGS (7)
  1. TOCILIZUMAB [Suspect]
     Route: 042
     Dates: start: 20060911, end: 20080701
  2. TYLENOL-500 [Concomitant]
     Dates: start: 19860101
  3. PLACEBO [Suspect]
     Indication: RHEUMATOID ARTHRITIS
     Dosage: PATIENT PARTICIPATED IN STUDY WA17824
     Route: 048
  4. TOCILIZUMAB [Suspect]
     Indication: RHEUMATOID ARTHRITIS
     Route: 042
     Dates: start: 20060714, end: 20060814
  5. TOCILIZUMAB [Suspect]
     Dosage: PATIENT PARTICIPATED IN STUDY WA17824
     Route: 042
  6. TOCILIZUMAB [Suspect]
     Route: 042
     Dates: start: 20090220
  7. LEVOTHYROXINE SODIUM [Concomitant]
     Dates: start: 20000101

REACTIONS (1)
  - RHEUMATOID NODULE [None]
